FAERS Safety Report 4309747-9 (Version None)
Quarter: 2004Q1

REPORT INFORMATION
  Report Type: 
  Country: None (occurrence: None)
  Receive Date: 20040301
  Receipt Date: 20040212
  Transmission Date: 20041129
  Serious: Yes (Congenital Anomaly)
  Sender: FDA-Public Use
  Company Number: 2004007806

PATIENT
  Age: 26 Year
  Sex: Female

DRUGS (2)
  1. VIRACEPT [Suspect]
     Indication: ILL-DEFINED DISORDER
     Dosage: 2500 MG, ORAL
     Route: 048
     Dates: start: 20040116
  2. ZIDOVUDINE [Suspect]
     Indication: ILL-DEFINED DISORDER
     Dosage: 600 MG, ORAL
     Route: 048
     Dates: start: 20040116

REACTIONS (2)
  - DRUG EXPOSURE DURING PREGNANCY [None]
  - NORMAL DELIVERY [None]
